FAERS Safety Report 5488026-0 (Version None)
Quarter: 2007Q4

REPORT INFORMATION
  Report Type: 
  Country: None (occurrence: None)
  Receive Date: 20071017
  Receipt Date: 20071005
  Transmission Date: 20080405
  Serious: Yes (Other)
  Sender: FDA-Public Use
  Company Number: CH-JNJFOC-20071001300

PATIENT
  Age: 62 Year
  Sex: Female

DRUGS (25)
  1. TAVANIC [Suspect]
     Indication: PHARYNGITIS
     Route: 065
  2. CALCORT [Interacting]
     Indication: POLYARTHRITIS
     Route: 048
  3. SIMVASTIN [Interacting]
     Indication: DRUG USE FOR UNKNOWN INDICATION
     Route: 048
  4. MOTILIUM [Concomitant]
     Route: 048
  5. NEUPOGEN [Concomitant]
     Route: 065
  6. NAVOBAN [Concomitant]
     Route: 048
  7. CLINDAMYCIN HCL [Concomitant]
     Route: 048
  8. ULCOGANT [Concomitant]
     Route: 048
  9. OXIS [Concomitant]
     Route: 055
  10. PULMICORT [Concomitant]
     Route: 055
  11. DIHYDROCODEINON STREULI [Concomitant]
     Route: 048
  12. DAFALGAN [Concomitant]
     Route: 048
  13. NEXIUM [Concomitant]
     Route: 048
  14. BELOC [Concomitant]
     Route: 048
  15. TORAMID [Concomitant]
     Route: 048
  16. ASPIRIN [Concomitant]
     Route: 048
  17. TRIATEC [Concomitant]
     Route: 048
  18. NITRODERM [Concomitant]
     Route: 062
  19. FOLIC ACID [Concomitant]
     Route: 048
  20. CAL-DE 3F [Concomitant]
     Route: 065
  21. SALOFALK [Concomitant]
     Route: 054
  22. DICETEL [Concomitant]
     Route: 048
  23. LEXOTANIL [Concomitant]
     Route: 048
  24. ETOPOPHOS [Concomitant]
     Route: 042
  25. CARBOPLATIN [Concomitant]
     Route: 042

REACTIONS (2)
  - DRUG INTERACTION [None]
  - TENDON RUPTURE [None]
